FAERS Safety Report 7453528-4 (Version None)
Quarter: 2011Q2

REPORT INFORMATION
  Report Type: 
  Country: None (occurrence: None)
  Receive Date: 20110502
  Receipt Date: 20110223
  Transmission Date: 20111010
  Serious: No
  Sender: FDA-Public Use
  Company Number: US-ASTRAZENECA-2011SE10538

PATIENT
  Age: 66 Year
  Sex: Female

DRUGS (4)
  1. CHOLESTEROL MEDICATION [Concomitant]
  2. BUSPAR [Concomitant]
     Indication: STRESS
  3. NEXIUM [Suspect]
     Route: 048
  4. BUSPAR [Concomitant]
     Indication: NERVOUSNESS

REACTIONS (3)
  - DYSPEPSIA [None]
  - GASTRIC DISORDER [None]
  - GASTROOESOPHAGEAL REFLUX DISEASE [None]
